FAERS Safety Report 20448850 (Version 2)
Quarter: 2022Q1

REPORT INFORMATION
  Report Type: Spontaneous
  Country: US (occurrence: US)
  Receive Date: 20220209
  Receipt Date: 20220215
  Transmission Date: 20220423
  Serious: No
  Sender: FDA-Public Use
  Company Number: US-SA-SAC20220201000472

PATIENT
  Age: 30 Year
  Sex: Male

DRUGS (1)
  1. DUPIXENT [Suspect]
     Active Substance: DUPILUMAB
     Dosage: 300MG/2ML, 300 MG, FREQUENCY: OTHER
     Route: 058
     Dates: start: 202111

REACTIONS (3)
  - Injection site pain [Unknown]
  - Erythema [Recovered/Resolved]
  - Product dose omission in error [Unknown]
